FAERS Safety Report 16476894 (Version 1)
Quarter: 2019Q2

REPORT INFORMATION
  Report Type: Other
  Country: DE (occurrence: DE)
  Receive Date: 20190626
  Receipt Date: 20190626
  Transmission Date: 20190711
  Serious: Yes (Other)
  Sender: FDA-Public Use
  Company Number: DE-LUPIN PHARMACEUTICALS INC.-2019-03858

PATIENT
  Age: 42 Year
  Sex: Female
  Weight: 80 kg

DRUGS (4)
  1. PIRACETAM [Concomitant]
     Active Substance: PIRACETAM
     Indication: ORGANIC BRAIN SYNDROME
     Dosage: 120 MILLIGRAM, QD
     Route: 048
     Dates: start: 20180319, end: 20180427
  2. LEVETIRACETAM. [Concomitant]
     Active Substance: LEVETIRACETAM
     Indication: EPILEPSY
     Dosage: 1500 MILLIGRAM, QD (2X750 BZW. 3X500 MG/D)
     Route: 048
     Dates: start: 20180319, end: 20181212
  3. QUETIAPINE FUMARATE EXTENDED-RELEASE [Suspect]
     Active Substance: QUETIAPINE FUMARATE
     Indication: ORGANIC BRAIN SYNDROME
     Dosage: 50 MILLIGRAM, QD
     Route: 048
     Dates: start: 20180319, end: 20181212
  4. GINGIUM INTENS [Concomitant]
     Indication: ORGANIC BRAIN SYNDROME
     Dosage: 120 MILLIGRAM, QD
     Route: 048
     Dates: start: 20180319, end: 20180427

REACTIONS (2)
  - Gestational diabetes [Recovered/Resolved]
  - Exposure during pregnancy [Unknown]
